FAERS Safety Report 8755887 (Version 3)
Quarter: 2013Q1

REPORT INFORMATION
  Report Type: Spontaneous
  Country: US (occurrence: US)
  Receive Date: 20120828
  Receipt Date: 20130122
  Transmission Date: 20140127
  Serious: Yes (Hospitalization, Other)
  Sender: FDA-Public Use
  Company Number: US-ROCHE-789094

PATIENT
  Sex: Male
  Weight: 73.55 kg

DRUGS (2)
  1. ACCUTANE [Suspect]
     Indication: ACNE
     Route: 065
     Dates: start: 200309, end: 200401
  2. ACCUTANE [Suspect]
     Route: 065
     Dates: start: 20041210, end: 200503

REACTIONS (7)
  - Colitis ulcerative [Unknown]
  - Inflammatory bowel disease [Unknown]
  - Stress [Unknown]
  - Rectal fissure [Unknown]
  - Cholangitis sclerosing [Unknown]
  - Irritable bowel syndrome [Unknown]
  - Dry eye [Unknown]
